FAERS Safety Report 6420718-9 (Version None)
Quarter: 2009Q4

REPORT INFORMATION
  Report Type: 
  Country: None (occurrence: None)
  Receive Date: 20091030
  Receipt Date: 20091021
  Transmission Date: 20100525
  Serious: Yes (Hospitalization)
  Sender: FDA-Public Use
  Company Number: US-BIOGENIDEC-2009BI025519

PATIENT
  Age: 41 Year
  Sex: Female
  Weight: 61 kg

DRUGS (1)
  1. TYSABRI [Suspect]
     Indication: MULTIPLE SCLEROSIS
     Route: 042
     Dates: start: 20080904, end: 20090713

REACTIONS (6)
  - BLOOD URINE PRESENT [None]
  - LIVER DISORDER [None]
  - LYMPHADENOPATHY [None]
  - NEPHROLITHIASIS [None]
  - URINARY TRACT INFECTION [None]
  - WHEEZING [None]
